FAERS Safety Report 8365289-5 (Version None)
Quarter: 2012Q2

REPORT INFORMATION
  Report Type: 
  Country: None (occurrence: None)
  Receive Date: 20120516
  Receipt Date: 20120502
  Transmission Date: 20120825
  Serious: Yes (Other)
  Sender: FDA-Public Use
  Company Number: TW-COVIDIEN/TYCO HEALTHCARE/MALLINCKRODT-T201201642

PATIENT
  Age: 38 Year
  Sex: Female

DRUGS (4)
  1. METHAMPHETAMINE HYDROCHLORIDE [Suspect]
  2. CORTICOSTEROIDS [Concomitant]
     Indication: ASTHMA
  3. METHADOSE [Suspect]
     Indication: DRUG DEPENDENCE
     Dosage: UNK
  4. HEROIN [Suspect]
     Dosage: UNK

REACTIONS (2)
  - MATERNAL EXPOSURE DURING PREGNANCY [None]
  - PREMATURE RUPTURE OF MEMBRANES [None]
